FAERS Safety Report 24380449 (Version 2)
Quarter: 2025Q3

REPORT INFORMATION
  Report Type: Spontaneous
  Country: US (occurrence: US)
  Receive Date: 20240930
  Receipt Date: 20250703
  Transmission Date: 20251021
  Serious: No
  Sender: SANOFI AVENTIS
  Company Number: US-SA-2024SA274027

PATIENT
  Age: 58 Year
  Sex: Female

DRUGS (4)
  1. DUPILUMAB [Suspect]
     Active Substance: DUPILUMAB
     Indication: Neurodermatitis
     Route: 058
     Dates: start: 202408
  2. DUPILUMAB [Suspect]
     Active Substance: DUPILUMAB
     Dosage: 300 MG, QOW
     Route: 058
     Dates: start: 2024
  3. DUPILUMAB [Suspect]
     Active Substance: DUPILUMAB
     Route: 058
     Dates: start: 20250618
  4. SKYRIZI [Concomitant]
     Active Substance: RISANKIZUMAB-RZAA
     Route: 065

REACTIONS (8)
  - Pain in extremity [Unknown]
  - Nausea [Recovered/Resolved]
  - Vomiting [Recovered/Resolved]
  - Chills [Recovered/Resolved]
  - Pain [Recovered/Resolved]
  - Pruritus [Recovering/Resolving]
  - Diarrhoea [Recovered/Resolved]
  - Product dose omission in error [Unknown]

NARRATIVE: CASE EVENT DATE: 20240101
